FAERS Safety Report 18774112 (Version 1)
Quarter: 2021Q1

REPORT INFORMATION
  Report Type: Report from Study
  Country: JP (occurrence: JP)
  Receive Date: 20210122
  Receipt Date: 20210122
  Transmission Date: 20210419
  Serious: Yes (Hospitalization, Other)
  Sender: FDA-Public Use
  Company Number: JP-KYOWAKIRIN-2021AKK000796

PATIENT

DRUGS (41)
  1. FLUCONAZOLE. [Concomitant]
     Active Substance: FLUCONAZOLE
     Indication: INFECTION PROPHYLAXIS
     Dosage: UNK
     Route: 048
     Dates: start: 20171019
  2. MIYA?BM [Concomitant]
     Active Substance: CLOSTRIDIUM BUTYRICUM SPORES STRAIN M-55
     Indication: PROPHYLAXIS
     Dosage: UNK
     Route: 048
     Dates: end: 20180118
  3. ETIZOLAM [Concomitant]
     Active Substance: ETIZOLAM
     Indication: INSOMNIA
     Dosage: UNK
     Route: 048
     Dates: start: 20171105, end: 20180708
  4. CARBOCISTEINE [Concomitant]
     Active Substance: CARBOCYSTEINE
     Indication: COUGH
     Dosage: UNK
     Route: 048
     Dates: start: 20171024, end: 20171030
  5. CARBOCISTEINE [Concomitant]
     Active Substance: CARBOCYSTEINE
     Indication: PRODUCTIVE COUGH
  6. MUCOFILIN [Concomitant]
     Indication: COUGH
     Dosage: UNK
     Dates: start: 20171027, end: 20171114
  7. MUCOFILIN [Concomitant]
     Indication: PRODUCTIVE COUGH
  8. ATARAX?P [HYDROXYZINE HYDROCHLORIDE] [Concomitant]
     Indication: PYREXIA
     Dosage: UNK
     Route: 065
     Dates: start: 20171105, end: 20171105
  9. PRIMPERAN [Concomitant]
     Active Substance: METOCLOPRAMIDE HYDROCHLORIDE
     Indication: HICCUPS
     Dosage: UNK
     Route: 065
     Dates: start: 20171023, end: 20171023
  10. PREDONINE [Concomitant]
     Active Substance: PREDNISOLONE
     Indication: PROPHYLAXIS
     Dosage: UNK
     Route: 065
     Dates: start: 20171123
  11. ROPION [Concomitant]
     Active Substance: FLURBIPROFEN AXETIL
     Indication: PYREXIA
     Dosage: UNK
     Route: 065
     Dates: start: 20171105, end: 20171105
  12. MAGNESIUM OXIDE. [Concomitant]
     Active Substance: MAGNESIUM OXIDE
     Indication: FAECAL MANAGEMENT
     Dosage: UNK
     Route: 048
  13. UBIDECARENONE. [Concomitant]
     Active Substance: UBIDECARENONE
     Indication: PROPHYLAXIS
     Dosage: UNK
     Route: 048
     Dates: end: 20180118
  14. OLOPATADINE HYDROCHLORIDE. [Concomitant]
     Active Substance: OLOPATADINE HYDROCHLORIDE
     Indication: RASH
     Dosage: UNK
     Route: 048
     Dates: start: 20171122
  15. RABEPRAZOLE NA [Concomitant]
     Active Substance: RABEPRAZOLE SODIUM
     Indication: PROPHYLAXIS
     Dosage: UNK
     Route: 048
  16. AMITIZA [Concomitant]
     Active Substance: LUBIPROSTONE
     Indication: FAECAL MANAGEMENT
     Dosage: UNK
     Route: 048
     Dates: start: 20171226
  17. SENNOSIDE A+B CALCIUM [Concomitant]
     Active Substance: SENNOSIDES A AND B
     Indication: FAECAL MANAGEMENT
     Dosage: UNK
     Route: 048
     Dates: start: 20171025, end: 20180521
  18. MOGAMULIZUMAB [Suspect]
     Active Substance: MOGAMULIZUMAB
     Indication: ADULT T-CELL LYMPHOMA/LEUKAEMIA
     Dosage: 1 MG/KG, 1X/4 WEEKS
     Route: 041
     Dates: start: 20171023, end: 20171220
  19. DEXART [Concomitant]
     Active Substance: DEXAMETHASONE SODIUM PHOSPHATE
     Indication: PROPHYLAXIS
     Dosage: 6.6 MG, 1X/4 WEEKS
     Route: 065
     Dates: start: 20171023, end: 20171220
  20. OMEGACIN [Concomitant]
     Active Substance: BIAPENEM
     Indication: INFECTION PROPHYLAXIS
     Dosage: UNK
     Route: 065
     Dates: start: 20171110, end: 20171114
  21. PREDONINE [Concomitant]
     Active Substance: PREDNISOLONE
     Indication: PROPHYLAXIS
     Dosage: UNK
     Route: 048
     Dates: start: 20171024
  22. SAXIZON [Concomitant]
     Active Substance: HYDROCORTISONE SODIUM SUCCINATE
     Indication: MYELOSUPPRESSION
     Dosage: UNK
     Route: 065
     Dates: start: 20171104, end: 20171104
  23. SOLU?CORTEF [Concomitant]
     Active Substance: HYDROCORTISONE SODIUM SUCCINATE
     Indication: MYELOSUPPRESSION
     Dosage: UNK
     Route: 065
     Dates: start: 20171104, end: 20171104
  24. FUROSEMIDE. [Concomitant]
     Active Substance: FUROSEMIDE
     Indication: PROPHYLAXIS
     Dosage: UNK
     Route: 065
  25. LOXOPROFEN [Concomitant]
     Active Substance: LOXOPROFEN
     Indication: PYREXIA
     Dosage: UNK
     Route: 048
     Dates: end: 20180715
  26. SHAKUYAKUKANZOTO [Concomitant]
     Active Substance: HERBALS
     Indication: HICCUPS
     Dosage: UNK
     Route: 048
     Dates: start: 20171023, end: 20171030
  27. FEBURIC [Concomitant]
     Active Substance: FEBUXOSTAT
     Indication: PROPHYLAXIS
     Dosage: UNK
     Route: 048
     Dates: start: 20171019
  28. ANAEMETRO [Concomitant]
     Active Substance: METRONIDAZOLE
     Indication: INFECTION PROPHYLAXIS
     Dosage: UNK
     Route: 041
     Dates: start: 20171105, end: 20171105
  29. XYZAL [Concomitant]
     Active Substance: LEVOCETIRIZINE DIHYDROCHLORIDE
     Indication: RASH
     Dosage: UNK
     Route: 048
     Dates: start: 20171121
  30. HEPARIN NA LOCK [Concomitant]
     Active Substance: HEPARIN SODIUM
     Indication: PROPHYLAXIS
     Dosage: UNK
     Route: 065
  31. ISCOTIN [Concomitant]
     Active Substance: ISONIAZID
     Indication: INFECTION PROPHYLAXIS
     Dosage: UNK
     Route: 048
     Dates: start: 20171019, end: 20180105
  32. GENINAX [Concomitant]
     Active Substance: GARENOXACIN MESYLATE
     Indication: INFECTION PROPHYLAXIS
     Dosage: UNK
     Route: 048
     Dates: start: 20171205, end: 20171211
  33. MUCOSAL [AMBROXOL HYDROCHLORIDE] [Concomitant]
     Indication: COUGH
     Dosage: UNK
     Route: 048
     Dates: start: 20171024, end: 20171030
  34. LANDSEN [Concomitant]
     Active Substance: CLONAZEPAM
     Indication: PROPHYLAXIS
     Dosage: UNK
     Route: 048
     Dates: start: 20171023, end: 20171025
  35. FILGRASTIM [Concomitant]
     Active Substance: FILGRASTIM
     Indication: MYELOSUPPRESSION
     Dosage: UNK
     Route: 065
     Dates: start: 20171103
  36. MAXIPIME [Concomitant]
     Active Substance: CEFEPIME HYDROCHLORIDE
     Indication: PYREXIA
     Dosage: UNK
     Route: 065
     Dates: start: 20171105
  37. G?LASTA SUBCUTANEOUS INJECTION 3.6 [Concomitant]
     Indication: PROPHYLAXIS
     Dosage: UNK
     Route: 058
     Dates: start: 20171130, end: 20171130
  38. CHLORPHENIRAMINE MALEATE. [Concomitant]
     Active Substance: CHLORPHENIRAMINE MALEATE
     Indication: PROPHYLAXIS
     Dosage: UNK UNK, 1X/4 WEEKS
     Route: 065
     Dates: start: 20171023, end: 20171220
  39. DAIPHEN [Concomitant]
     Active Substance: SULFAMETHOXAZOLE\TRIMETHOPRIM
     Indication: INFECTION PROPHYLAXIS
     Dosage: UNK
     Route: 048
     Dates: start: 20171019
  40. SULBACILLIN [Concomitant]
     Active Substance: AMPICILLIN SODIUM\SULBACTAM SODIUM
     Indication: INFECTION PROPHYLAXIS
     Dosage: UNK
     Route: 042
     Dates: start: 20171106
  41. MUCOSAL [AMBROXOL HYDROCHLORIDE] [Concomitant]
     Indication: PRODUCTIVE COUGH

REACTIONS (5)
  - Hepatic function abnormal [Not Recovered/Not Resolved]
  - Myelosuppression [Recovered/Resolved]
  - Rash [Not Recovered/Not Resolved]
  - Infusion related reaction [Recovered/Resolved]
  - Infusion related reaction [Recovered/Resolved]

NARRATIVE: CASE EVENT DATE: 20171103
